FAERS Safety Report 6377884-3 (Version None)
Quarter: 2009Q3

REPORT INFORMATION
  Report Type: 
  Country: None (occurrence: None)
  Receive Date: 20090925
  Receipt Date: 20090914
  Transmission Date: 20100115
  Serious: Yes (Other)
  Sender: FDA-Public Use
  Company Number: PHEH2009US10892

PATIENT
  Sex: Female

DRUGS (8)
  1. RECLAST [Suspect]
     Dosage: UNK
     Dates: start: 20090801, end: 20090801
  2. TORSEMIDE [Concomitant]
  3. PREDNISONE TAB [Concomitant]
  4. LYRICA [Concomitant]
  5. NABUMETONE [Concomitant]
  6. PEPCID [Concomitant]
  7. SYNTHROID [Concomitant]
  8. IRON [Concomitant]

REACTIONS (4)
  - NIGHTMARE [None]
  - PNEUMONIA [None]
  - SOMNOLENCE [None]
  - THYROID DISORDER [None]
